FAERS Safety Report 5379178-1 (Version None)
Quarter: 2007Q3

REPORT INFORMATION
  Report Type: 
  Country: None (occurrence: None)
  Receive Date: 20070705
  Receipt Date: 20070628
  Transmission Date: 20080115
  Serious: Yes (Other)
  Sender: FDA-Public Use
  Company Number: US-BRISTOL-MYERS SQUIBB COMPANY-13806138

PATIENT
  Age: 39 Year
  Sex: Female
  Weight: 63 kg

DRUGS (9)
  1. ORENCIA [Suspect]
     Indication: RHEUMATOID ARTHRITIS
     Route: 041
     Dates: start: 20060909, end: 20070401
  2. METHOTREXATE [Concomitant]
  3. MOBIC [Concomitant]
  4. PREDNISONE TAB [Concomitant]
     Indication: RHEUMATOID ARTHRITIS
  5. CALCIUM + VITAMIN D [Concomitant]
  6. AMBIEN [Concomitant]
  7. OXYCODONE HCL [Concomitant]
  8. FOLIC ACID [Concomitant]
  9. FOSAMAX PLUS D [Concomitant]

REACTIONS (1)
  - CHORIORETINOPATHY [None]
